FAERS Safety Report 4617065-4 (Version None)
Quarter: 2005Q1

REPORT INFORMATION
  Report Type: 
  Country: None (occurrence: None)
  Receive Date: 20050323
  Receipt Date: 20050315
  Transmission Date: 20050727
  Serious: Yes (Death, Life-Threatening)
  Sender: FDA-Public Use
  Company Number: GB-JNJFOC-20050203628

PATIENT
  Sex: Male

DRUGS (6)
  1. SPORANOX [Suspect]
     Indication: FUNGAL RASH
     Route: 049
  2. BACLOFEN [Concomitant]
     Dosage: 1 AM; 1 NOON; 2 NOCTE
  3. FERROUS SULFATE TAB [Concomitant]
  4. FYBOGEL [Concomitant]
  5. METOCLOPRAMIDE [Concomitant]
  6. TEMAZEPAM [Concomitant]

REACTIONS (4)
  - BRONCHOPNEUMONIA [None]
  - DYSKINESIA [None]
  - GRAND MAL CONVULSION [None]
  - PETIT MAL EPILEPSY [None]
